FAERS Safety Report 18460319 (Version 1)
Quarter: 2020Q4

REPORT INFORMATION
  Report Type: Spontaneous
  Country: CN (occurrence: CN)
  Receive Date: 20201103
  Receipt Date: 20201103
  Transmission Date: 20210114
  Serious: Yes (Hospitalization, Disabling)
  Sender: FDA-Public Use
  Company Number: CN-BAXTER-2020BAX022063

PATIENT
  Age: 51 Year
  Sex: Female
  Weight: 62.2 kg

DRUGS (8)
  1. ENDOXAN [Suspect]
     Active Substance: CYCLOPHOSPHAMIDE
     Dosage: DOSE RE-INTRODUCED: CYCLOPHOSPHAMIDE + 0.9% NS
     Route: 041
     Dates: start: 202010
  2. 0.9% SODIUM CHLORIDE INJECTION [Suspect]
     Active Substance: SODIUM CHLORIDE
     Indication: MEDICATION DILUTION
     Dosage: CYCLOPHOSPHAMIDE 900 MG + 0.9% NS 50 ML
     Route: 041
     Dates: start: 20201013, end: 20201013
  3. 0.9% SODIUM CHLORIDE INJECTION [Suspect]
     Active Substance: SODIUM CHLORIDE
     Dosage: DOCETAXEL 100 MG + 0.9% NS 250 ML
     Route: 041
     Dates: start: 20201013, end: 20201013
  4. DOCETAXEL. [Suspect]
     Active Substance: DOCETAXEL
     Dosage: DOSE RE-INTRODUCED: DOCETAXEL + 0.9% NS
     Route: 041
     Dates: start: 202010
  5. ENDOXAN [Suspect]
     Active Substance: CYCLOPHOSPHAMIDE
     Indication: BREAST CANCER
     Dosage: CYCLOPHOSPHAMIDE 900 MG + 0.9% NS 50 ML
     Route: 041
     Dates: start: 20201013, end: 20201013
  6. 0.9% SODIUM CHLORIDE INJECTION [Suspect]
     Active Substance: SODIUM CHLORIDE
     Dosage: DOSE RE-INTRODUCED: CYCLOPHOSPHAMIDE + 0.9% NS
     Route: 041
     Dates: start: 202010
  7. 0.9% SODIUM CHLORIDE INJECTION [Suspect]
     Active Substance: SODIUM CHLORIDE
     Dosage: DOSE RE-INTRODUCED: DOCETAXEL + 0.9% NS
     Route: 041
     Dates: start: 202010
  8. DOCETAXEL. [Suspect]
     Active Substance: DOCETAXEL
     Indication: BREAST CANCER
     Dosage: DOCETAXEL 100 MG + 0.9% NS 250 ML
     Route: 041
     Dates: start: 20201013, end: 20201013

REACTIONS (1)
  - Myelosuppression [Recovering/Resolving]

NARRATIVE: CASE EVENT DATE: 20201019
